FAERS Safety Report 8521651-9 (Version None)
Quarter: 2012Q3

REPORT INFORMATION
  Report Type: 
  Country: None (occurrence: None)
  Receive Date: 20120719
  Receipt Date: 20120717
  Transmission Date: 20120928
  Serious: Yes (Other)
  Sender: FDA-Public Use
  Company Number: PHFR2012GB004033

PATIENT
  Sex: Male

DRUGS (1)
  1. CLOZARIL [Suspect]
     Indication: SCHIZOPHRENIA
     Dates: start: 20120702, end: 20120716

REACTIONS (6)
  - COUGH [None]
  - DYSPNOEA [None]
  - CHEST PAIN [None]
  - INSOMNIA [None]
  - MALAISE [None]
  - BALANCE DISORDER [None]
